FAERS Safety Report 15756719 (Version 1)
Quarter: 2018Q4

REPORT INFORMATION
  Report Type: Spontaneous
  Country: US (occurrence: US)
  Receive Date: 20181206
  Receipt Date: 20181206
  Transmission Date: 20190205
  Serious: No
  Sender: FDA-Public Use
  Company Number: None

PATIENT
  Age: 61 Year
  Sex: Female

DRUGS (1)
  1. COSENTYX [Suspect]
     Active Substance: SECUKINUMAB
     Route: 048
     Dates: start: 201808

REACTIONS (3)
  - Infection [None]
  - Intentional dose omission [None]
  - Nasopharyngitis [None]

NARRATIVE: CASE EVENT DATE: 20181118
